FAERS Safety Report 15762706 (Version 1)
Quarter: 2018Q4

REPORT INFORMATION
  Report Type: Spontaneous
  Country: JP (occurrence: JP)
  Receive Date: 20181226
  Receipt Date: 20181226
  Transmission Date: 20190205
  Serious: Yes (Life-Threatening, Other)
  Sender: FDA-Public Use
  Company Number: IND-JP-009507513-1811JPN000586J

PATIENT
  Age: 41 Year
  Sex: Female

DRUGS (3)
  1. ESLAX INTRAVENOUS 25MG/2.5ML [Suspect]
     Active Substance: ROCURONIUM BROMIDE
     Indication: NEUROMUSCULAR BLOCKING THERAPY
     Dosage: 0.6 MILLIGRAM/KILOGRAM
     Route: 042
     Dates: start: 201810, end: 201810
  2. XYLOCAINE [Concomitant]
     Active Substance: LIDOCAINE HYDROCHLORIDE
     Indication: INDUCTION OF ANAESTHESIA
     Dosage: 5 MILLILITER, QD
     Route: 051
     Dates: start: 201810, end: 201810
  3. PROPOFOL. [Concomitant]
     Active Substance: PROPOFOL
     Indication: INDUCTION OF ANAESTHESIA
     Dosage: UNK
     Route: 041
     Dates: start: 201810, end: 201810

REACTIONS (4)
  - Anaphylactic reaction [Recovered/Resolved]
  - Hypoxia [Unknown]
  - Pneumomediastinum [Unknown]
  - Diplopia [Unknown]

NARRATIVE: CASE EVENT DATE: 2018
